FAERS Safety Report 24150211 (Version 1)
Quarter: 2024Q3

REPORT INFORMATION
  Report Type: Spontaneous
  Country: US (occurrence: US)
  Receive Date: 20240730
  Receipt Date: 20240730
  Transmission Date: 20241016
  Serious: Yes (Death, Hospitalization, Other)
  Sender: SANOFI AVENTIS
  Company Number: US-SANOFI-02150152

PATIENT
  Age: 49 Year
  Sex: Female

DRUGS (1)
  1. DUPIXENT [Suspect]
     Active Substance: DUPILUMAB
     Indication: Asthma
     Dosage: 300 MG
     Route: 065
     Dates: start: 2019

REACTIONS (5)
  - Death [Fatal]
  - Asthma [Unknown]
  - Pneumonia [Unknown]
  - HIV infection [Unknown]
  - Obesity [Unknown]
